FAERS Safety Report 7085821-1 (Version None)
Quarter: 2010Q4

REPORT INFORMATION
  Report Type: 
  Country: None (occurrence: None)
  Receive Date: 20101105
  Receipt Date: 20101027
  Transmission Date: 20110411
  Serious: Yes (Hospitalization)
  Sender: FDA-Public Use
  Company Number: JP-ROCHE-735247

PATIENT
  Age: 77 Year
  Sex: Female

DRUGS (3)
  1. XELODA [Suspect]
     Indication: COLON CANCER METASTATIC
     Dosage: NOTE: DOSAGE IS UNCERTAIN
     Route: 048
  2. AVASTIN [Suspect]
     Indication: COLON CANCER METASTATIC
     Route: 041
     Dates: start: 20100217, end: 20100310
  3. ELPLAT [Concomitant]
     Dosage: NOTE: DOSAGE IS UNCERTAIN
     Route: 041

REACTIONS (2)
  - DEEP VEIN THROMBOSIS [None]
  - PULMONARY EMBOLISM [None]
